FAERS Safety Report 9538226 (Version 2)
Quarter: 2013Q3

REPORT INFORMATION
  Report Type: Spontaneous
  Country: US (occurrence: US)
  Receive Date: 20130920
  Receipt Date: 20130920
  Transmission Date: 20140515
  Serious: Yes (Hospitalization)
  Sender: FDA-Public Use
  Company Number: US-BIOGENIDEC-2013BI071069

PATIENT
  Age: 60 Year
  Sex: Male

DRUGS (10)
  1. TECFIDERA [Suspect]
     Indication: MULTIPLE SCLEROSIS
     Route: 048
     Dates: start: 201305
  2. TECFIDERA [Suspect]
     Indication: MULTIPLE SCLEROSIS
     Route: 048
     Dates: start: 20130501
  3. TECFIDERA [Suspect]
     Indication: MULTIPLE SCLEROSIS
  4. SIMVASTATIN [Concomitant]
  5. LISINOPRIL [Concomitant]
  6. METFORMIN [Concomitant]
  7. CIALIS [Concomitant]
  8. LYRICA [Concomitant]
  9. AMBIEN [Concomitant]
  10. CITALOPRAM [Concomitant]

REACTIONS (1)
  - Urinary tract infection [Recovered/Resolved]
